FAERS Safety Report 14983454 (Version 1)
Quarter: 2018Q2

REPORT INFORMATION
  Report Type: Spontaneous
  Country: US (occurrence: US)
  Receive Date: 20180517
  Receipt Date: 20180517
  Transmission Date: 20180711
  Serious: Yes (Disabling, Other)
  Sender: FDA-Public Use
  Company Number: None

PATIENT
  Age: 42 Year
  Sex: Male
  Weight: 76.5 kg

DRUGS (4)
  1. FISH OIL [Concomitant]
     Active Substance: FISH OIL
  2. KIRKLAND MULTIVITAMIN [Concomitant]
  3. KIRKLAND SIGNATURE MINOXIDIL [Suspect]
     Active Substance: MINOXIDIL
     Indication: ALOPECIA
     Dosage: QUANTITY:2.1 OUNCE(S);?
     Route: 062
     Dates: start: 20160501, end: 20180510
  4. PROTEIN POWDER [Concomitant]

REACTIONS (2)
  - Erectile dysfunction [None]
  - Libido decreased [None]

NARRATIVE: CASE EVENT DATE: 20160501
